FAERS Safety Report 13027135 (Version 2)
Quarter: 2017Q1

REPORT INFORMATION
  Report Type: Spontaneous
  Country: TR (occurrence: TR)
  Receive Date: 20161214
  Receipt Date: 20170130
  Transmission Date: 20170428
  Serious: Yes (Other)
  Sender: FDA-Public Use
  Company Number: TR-TOLMAR, INC.-2016TR013431

PATIENT
  Age: 65 Year
  Sex: Male

DRUGS (1)
  1. ELIGARD [Suspect]
     Active Substance: LEUPROLIDE ACETATE
     Indication: PROSTATE CANCER
     Dosage: UNK
     Route: 065
     Dates: start: 20160829, end: 20160905

REACTIONS (2)
  - Papilloedema [Unknown]
  - Blindness [Unknown]

NARRATIVE: CASE EVENT DATE: 20160905
